FAERS Safety Report 20933546 (Version 1)
Quarter: 2022Q2

REPORT INFORMATION
  Report Type: Spontaneous
  Country: JP (occurrence: None)
  Receive Date: 20220608
  Receipt Date: 20220608
  Transmission Date: 20220721
  Serious: Yes (Hospitalization)
  Sender: FDA-Public Use
  Company Number: 2022A206893

PATIENT
  Age: 80 Year
  Sex: Male

DRUGS (5)
  1. TAGRISSO [Interacting]
     Active Substance: OSIMERTINIB
     Indication: Non-small cell lung cancer
     Route: 048
  2. WARFARIN POTASSIUM [Interacting]
     Active Substance: WARFARIN POTASSIUM
     Dosage: NUMBER OF SEPARATE DOSAGES UNKNOWN5.25MG UNKNOWN
     Route: 065
  3. WARFARIN POTASSIUM [Interacting]
     Active Substance: WARFARIN POTASSIUM
     Dosage: DOSE UNKNOWN UNKNOWN
     Route: 065
  4. WARFARIN POTASSIUM [Interacting]
     Active Substance: WARFARIN POTASSIUM
     Dosage: NUMBER OF SEPARATE DOSAGES UNKNOWN6.5MG UNKNOWN
     Route: 065
  5. WARFARIN POTASSIUM [Interacting]
     Active Substance: WARFARIN POTASSIUM
     Dosage: NUMBER OF SEPARATE DOSAGES UNKNOWN4.0MG UNKNOWN
     Route: 065

REACTIONS (2)
  - Prothrombin time ratio increased [Unknown]
  - Drug interaction [Unknown]
